FAERS Safety Report 18260088 (Version 1)
Quarter: 2020Q3

REPORT INFORMATION
  Report Type: Spontaneous
  Country: US (occurrence: US)
  Receive Date: 20200913
  Receipt Date: 20200913
  Transmission Date: 20201103
  Serious: Yes (Hospitalization)
  Sender: FDA-Public Use
  Company Number: US-STRIDES ARCOLAB LIMITED-2019SP010161

PATIENT
  Age: 61 Year
  Sex: Female

DRUGS (5)
  1. TACROLIMUS. [Suspect]
     Active Substance: TACROLIMUS
     Dosage: UNK, LOW DOSE
     Route: 065
  2. TACROLIMUS. [Suspect]
     Active Substance: TACROLIMUS
     Indication: LIVER TRANSPLANT
     Dosage: UNK, DOSE MODIFIED
     Route: 065
  3. TACROLIMUS. [Suspect]
     Active Substance: TACROLIMUS
     Indication: IMMUNOSUPPRESSANT DRUG THERAPY
     Dosage: UNK
     Route: 065
  4. MYCOPHENOLATE MOFETIL. [Concomitant]
     Active Substance: MYCOPHENOLATE MOFETIL
     Indication: TRANSPLANT REJECTION
     Dosage: UNK
     Route: 065
  5. SIROLIMUS. [Concomitant]
     Active Substance: SIROLIMUS
     Indication: TRANSPLANT REJECTION
     Dosage: UNK
     Route: 065

REACTIONS (13)
  - Fatigue [Unknown]
  - Bradypnoea [Unknown]
  - Apnoea [Recovered/Resolved]
  - Neurotoxicity [Unknown]
  - Respiratory failure [Unknown]
  - Encephalopathy [Unknown]
  - Dysarthria [Unknown]
  - Hypercapnia [Recovered/Resolved]
  - Tachypnoea [Unknown]
  - Acidosis [Unknown]
  - Confusional state [Unknown]
  - Mental status changes [Unknown]
  - Pleural effusion [Unknown]
